FAERS Safety Report 4977459-4 (Version None)
Quarter: 2006Q2

REPORT INFORMATION
  Report Type: 
  Country: None (occurrence: None)
  Receive Date: 20060413
  Receipt Date: 20060403
  Transmission Date: 20061013
  Serious: Yes (Hospitalization)
  Sender: FDA-Public Use
  Company Number: 2006046731

PATIENT
  Age: 36 Year
  Sex: Male

DRUGS (1)
  1. SOMATROPIN (SOMATROPIN) [Suspect]
     Indication: OFF LABEL USE
     Dosage: 4 I.U.

REACTIONS (8)
  - DRUG ABUSER [None]
  - DYSPHONIA [None]
  - DYSPNOEA [None]
  - LARYNGEAL OEDEMA [None]
  - LARYNGOCELE [None]
  - MUCOSAL DRYNESS [None]
  - STRIDOR [None]
  - VOCAL CORD DISORDER [None]
